FAERS Safety Report 24805573 (Version 2)
Quarter: 2025Q1

REPORT INFORMATION
  Report Type: Spontaneous
  Country: US (occurrence: US)
  Receive Date: 20250103
  Receipt Date: 20250211
  Transmission Date: 20250409
  Serious: Yes (Hospitalization)
  Sender: MYLAN
  Company Number: US-MYLANLABS-2024M1115839

PATIENT
  Sex: Female
  Weight: 70.76 kg

DRUGS (30)
  1. CARDURA [Suspect]
     Active Substance: DOXAZOSIN MESYLATE
     Indication: Bladder dilatation
     Route: 065
     Dates: start: 202412, end: 202412
  2. TAMSULOSIN [Suspect]
     Active Substance: TAMSULOSIN
     Indication: Bladder obstruction
     Dosage: 0.4 MILLIGRAM, AM (EVERY MORNING)
     Route: 048
     Dates: start: 20241205, end: 20241207
  3. TREPROSTINIL [Suspect]
     Active Substance: TREPROSTINIL
     Indication: Pulmonary arterial hypertension
     Dosage: 32 MICROGRAM, QID
     Route: 055
  4. TREPROSTINIL [Suspect]
     Active Substance: TREPROSTINIL
     Route: 055
     Dates: start: 20231113
  5. TYVASO DPI [Suspect]
     Active Substance: TREPROSTINIL
     Indication: Pulmonary arterial hypertension
     Dosage: 32 MICROGRAM, QID (FOUR TIME A DAY)
     Route: 055
     Dates: start: 202311
  6. TYVASO DPI [Suspect]
     Active Substance: TREPROSTINIL
     Indication: Pulmonary arterial hypertension
     Dosage: 16 MICROGRAM, QID
     Route: 065
     Dates: start: 202411
  7. UPTRAVI [Suspect]
     Active Substance: SELEXIPAG
     Indication: Product used for unknown indication
     Dosage: UNK, QD
     Route: 065
     Dates: start: 202306
  8. CEPHALEXIN [Suspect]
     Active Substance: CEPHALEXIN
     Indication: Product used for unknown indication
     Route: 065
  9. FLOMAX [Suspect]
     Active Substance: TAMSULOSIN HYDROCHLORIDE
     Indication: Product used for unknown indication
     Route: 065
     Dates: start: 202412, end: 202412
  10. OPSUMIT [Concomitant]
     Active Substance: MACITENTAN
     Route: 065
     Dates: start: 20240129
  11. VANTIN [Concomitant]
     Active Substance: CEFPODOXIME PROXETIL
     Route: 065
     Dates: start: 20240712
  12. DEMADEX [Concomitant]
     Active Substance: TORSEMIDE
     Route: 065
     Dates: start: 20240412
  13. PLAVIX [Concomitant]
     Active Substance: CLOPIDOGREL BISULFATE
     Route: 065
     Dates: start: 20240412
  14. NORVASC [Concomitant]
     Active Substance: AMLODIPINE BESYLATE
     Route: 065
     Dates: start: 20240412
  15. CLARITIN [Concomitant]
     Active Substance: LORATADINE
     Route: 065
  16. LUBRIFRESH P.M. [Concomitant]
     Active Substance: MINERAL OIL\PETROLATUM
     Route: 065
  17. BACTROBAN [Concomitant]
     Active Substance: MUPIROCIN CALCIUM
     Route: 065
     Dates: start: 20241115
  18. COLACE [Concomitant]
     Active Substance: DOCUSATE SODIUM
     Route: 065
  19. CROMOLYN SODIUM [Concomitant]
     Active Substance: CROMOLYN SODIUM
     Route: 065
  20. MICARDIS [Concomitant]
     Active Substance: TELMISARTAN
     Route: 065
  21. DELTASONE [Concomitant]
     Active Substance: PREDNISONE
     Route: 065
     Dates: start: 20230823
  22. PROVENTIL [Concomitant]
     Active Substance: ALBUTEROL
     Route: 065
     Dates: start: 20230912
  23. VENTOLIN [Concomitant]
     Active Substance: ALBUTEROL SULFATE
     Route: 065
     Dates: start: 20230912
  24. PROAIR HFA [Concomitant]
     Active Substance: ALBUTEROL SULFATE
     Route: 065
  25. ASPIRIN [Concomitant]
     Active Substance: ASPIRIN
     Route: 065
  26. IMURAN [Concomitant]
     Active Substance: AZATHIOPRINE
     Route: 065
  27. PREVACID [Concomitant]
     Active Substance: LANSOPRAZOLE
     Route: 065
  28. KEFLEX [Concomitant]
     Active Substance: CEPHALEXIN
     Route: 065
  29. ROCEPHIN [Concomitant]
     Active Substance: CEFTRIAXONE SODIUM
     Route: 065
  30. CEFPODOXIME [Concomitant]
     Active Substance: CEFPODOXIME
     Route: 065

REACTIONS (5)
  - Fluid retention [Unknown]
  - Urinary tract infection [Not Recovered/Not Resolved]
  - Blood pressure decreased [Recovered/Resolved]
  - Peripheral swelling [Recovered/Resolved]
  - Dizziness [Recovered/Resolved]
